FAERS Safety Report 16429891 (Version 3)
Quarter: 2019Q3

REPORT INFORMATION
  Report Type: Spontaneous
  Country: JP (occurrence: JP)
  Receive Date: 20190614
  Receipt Date: 20190708
  Transmission Date: 20191004
  Serious: Yes (Other)
  Sender: FDA-Public Use
  Company Number: JP-ASTELLAS-2019JP011560

PATIENT
  Age: 9 Year
  Sex: Male
  Weight: 21 kg

DRUGS (3)
  1. PROGRAF [Suspect]
     Active Substance: TACROLIMUS\TACROLIMUS ANHYDROUS
     Route: 048
  2. PREDNISOLONE. [Concomitant]
     Active Substance: PREDNISOLONE
     Indication: PRODUCT USED FOR UNKNOWN INDICATION
     Dosage: UNK UNK, UNKNOWN FREQ.
     Route: 065
  3. PROGRAF [Suspect]
     Active Substance: TACROLIMUS\TACROLIMUS ANHYDROUS
     Indication: TRANSPLANT REJECTION
     Dosage: 0.8 MG, TWICE DAILY
     Route: 048
     Dates: start: 20190531

REACTIONS (6)
  - Tremor [Recovering/Resolving]
  - Blood potassium increased [Recovering/Resolving]
  - Obliterative bronchiolitis [Recovering/Resolving]
  - Graft versus host disease [Recovering/Resolving]
  - Blood magnesium decreased [Recovering/Resolving]
  - Hypertension [Unknown]
